FAERS Safety Report 5772990-6 (Version None)
Quarter: 2008Q2

REPORT INFORMATION
  Report Type: 
  Country: None (occurrence: None)
  Receive Date: 20080613
  Receipt Date: 20080605
  Transmission Date: 20081010
  Serious: Yes (Hospitalization, Other)
  Sender: FDA-Public Use
  Company Number: US-PFIZER INC-2008047742

PATIENT
  Sex: Female
  Weight: 49.09 kg

DRUGS (4)
  1. DETROL LA [Suspect]
     Route: 048
  2. DIGOXIN [Concomitant]
  3. PROTONIX [Concomitant]
  4. WARFARIN [Concomitant]

REACTIONS (1)
  - DYSPHAGIA [None]
